FAERS Safety Report 24312941 (Version 5)
Quarter: 2024Q4

REPORT INFORMATION
  Report Type: Report from Study
  Country: CA (occurrence: CA)
  Receive Date: 20240912
  Receipt Date: 20241002
  Transmission Date: 20250114
  Serious: No
  Sender: ROCHE
  Company Number: CA-ROCHE-10000079050

PATIENT
  Sex: Female

DRUGS (1)
  1. OCRELIZUMAB [Suspect]
     Active Substance: OCRELIZUMAB
     Indication: Primary progressive multiple sclerosis
     Dosage: MORE DOSAGE INFORMATION IS 300 MG AT DAY 0 AND 14, THEN 600 MG EVERY 6 MONTHS
     Route: 042
     Dates: start: 20240821

REACTIONS (13)
  - Cough [Unknown]
  - Fungal infection [Unknown]
  - Urinary tract infection [Unknown]
  - Infusion related reaction [Unknown]
  - Malaise [Unknown]
  - Headache [Unknown]
  - Influenza like illness [Unknown]
  - Sinusitis [Unknown]
  - Ocular hyperaemia [Unknown]
  - Bladder discomfort [Unknown]
  - Insomnia [Unknown]
  - Urinary retention [Unknown]
  - Migraine [Unknown]
